FAERS Safety Report 13066884 (Version 1)
Quarter: 2016Q4

REPORT INFORMATION
  Report Type: Spontaneous
  Country: BE (occurrence: BE)
  Receive Date: 20161227
  Receipt Date: 20161227
  Transmission Date: 20170207
  Serious: Yes (Other)
  Sender: FDA-Public Use
  Company Number: BE-ALLERGAN-1682258US

PATIENT
  Age: 47 Year
  Sex: Male

DRUGS (1)
  1. LEVOTHYROXINE SODIUM UNK [Suspect]
     Active Substance: LEVOTHYROXINE SODIUM
     Indication: GOITRE
     Dosage: 100 ?G, QD
     Route: 065
     Dates: start: 201110, end: 201202

REACTIONS (1)
  - Hyperthyroidism [Unknown]
